FAERS Safety Report 18071939 (Version 1)
Quarter: 2020Q3

REPORT INFORMATION
  Report Type: Spontaneous
  Country: US (occurrence: US)
  Receive Date: 20200725
  Receipt Date: 20200725
  Transmission Date: 20201103
  Serious: No
  Sender: FDA-Public Use
  Company Number: None

PATIENT
  Age: 64 Year
  Sex: Female
  Weight: 56.25 kg

DRUGS (7)
  1. CITALOPHRAM [Concomitant]
  2. FISH OIL [Concomitant]
     Active Substance: FISH OIL
  3. CRESTOR (GENERIC) [Concomitant]
     Active Substance: ROSUVASTATIN CALCIUM
  4. BIOTIN [Concomitant]
     Active Substance: BIOTIN
  5. ACYCLOVIR. [Concomitant]
     Active Substance: ACYCLOVIR
  6. MULTIVITAMIN [Concomitant]
     Active Substance: VITAMINS
  7. AIMOVIG [Suspect]
     Active Substance: ERENUMAB-AOOE
     Indication: MIGRAINE
     Dosage: ?          OTHER FREQUENCY:MONTHLY INJECTION;?
     Route: 030
     Dates: start: 20200721, end: 20200721

REACTIONS (9)
  - Ear pain [None]
  - Back pain [None]
  - Migraine [None]
  - Tension [None]
  - Neck pain [None]
  - Ear discomfort [None]
  - Fatigue [None]
  - Pain in extremity [None]
  - Dry mouth [None]

NARRATIVE: CASE EVENT DATE: 20200721
